FAERS Safety Report 19029889 (Version 2)
Quarter: 2022Q2

REPORT INFORMATION
  Report Type: Spontaneous
  Country: FR (occurrence: FR)
  Receive Date: 20210319
  Receipt Date: 20220528
  Transmission Date: 20220721
  Serious: Yes (Hospitalization)
  Sender: FDA-Public Use
  Company Number: None

PATIENT
  Age: 68 Year
  Sex: Female
  Weight: 48 kg

DRUGS (6)
  1. VALACYCLOVIR HYDROCHLORIDE [Suspect]
     Active Substance: VALACYCLOVIR HYDROCHLORIDE
     Indication: Plasma cell myeloma
     Dosage: 1000MILLIGRAM, FREQUENCY TIME : 1 DAY , DURATION : 47 DAYS
     Route: 048
     Dates: start: 20201222, end: 20210207
  2. REVLIMID [Suspect]
     Active Substance: LENALIDOMIDE
     Indication: Plasma cell myeloma
     Dosage: 10MILLIGRAM , DURATION : 48 DAYS , FREQUENCY TIME : 1 DAY
     Route: 047
     Dates: start: 20201221, end: 20210207
  3. BACTRIM [Suspect]
     Active Substance: SULFAMETHOXAZOLE\TRIMETHOPRIM
     Indication: Plasma cell myeloma
     Dosage: 3DOSAGEFORM , FREQUENCY TIME : 1 WEEK , DURATION : 47 DAYS
     Route: 048
     Dates: start: 20201222, end: 20210207
  4. VELCADE [Suspect]
     Active Substance: BORTEZOMIB
     Indication: Plasma cell myeloma
     Dosage: 5.2MILLIGRAM, FREQUENCY TIME : 1 CYCLICAL , DURATION : 38 DAYS   , STRENGTH : 3.5 MG
     Route: 057
     Dates: start: 20201221, end: 20210128
  5. INNOHEP [Suspect]
     Active Substance: TINZAPARIN SODIUM
     Indication: Prophylaxis
     Dosage: 1DOSAGEFORM , FREQUENCY TIME : 1 DAY , DURATION : 47 DAYS
     Route: 058
     Dates: start: 20201222, end: 20210207
  6. LEUCOVORIN CALCIUM [Suspect]
     Active Substance: LEUCOVORIN CALCIUM
     Indication: Prophylaxis
     Dosage: UNIT DOSE : 5MILLIGRAM , LEDERFOLINE 5 MG, COMPRIME , FREQUENCY TIME : 1 DAY , DURATION : 47 DAYS  ,
     Route: 047
     Dates: start: 20201222, end: 20210207

REACTIONS (1)
  - Drug reaction with eosinophilia and systemic symptoms [Recovering/Resolving]

NARRATIVE: CASE EVENT DATE: 20210201
